FAERS Safety Report 9972419 (Version 1)
Quarter: 2014Q1

REPORT INFORMATION
  Report Type: Spontaneous
  Country: US (occurrence: US)
  Receive Date: 20140306
  Receipt Date: 20140306
  Transmission Date: 20141002
  Serious: No
  Sender: FDA-Public Use
  Company Number: US-ABBVIE-13P-163-1153833-00

PATIENT
  Sex: Male

DRUGS (5)
  1. HUMIRA [Suspect]
     Indication: COLITIS ULCERATIVE
     Route: 058
     Dates: start: 201308, end: 201308
  2. HUMIRA [Suspect]
     Indication: CROHN^S DISEASE
  3. COREG [Concomitant]
     Indication: HYPERTENSION
  4. NORVASC [Concomitant]
     Indication: HYPERTENSION
  5. PREVACID [Concomitant]
     Indication: GASTROOESOPHAGEAL REFLUX DISEASE

REACTIONS (5)
  - Vision blurred [Recovered/Resolved]
  - Hypersensitivity [Unknown]
  - Rash generalised [Unknown]
  - Rash [Recovered/Resolved]
  - Arthralgia [Recovered/Resolved]
